FAERS Safety Report 7341252-8 (Version None)
Quarter: 2011Q1

REPORT INFORMATION
  Report Type: 
  Country: None (occurrence: None)
  Receive Date: 20110309
  Receipt Date: 20110224
  Transmission Date: 20110831
  Serious: Yes (Hospitalization, Other)
  Sender: FDA-Public Use
  Company Number: PHFR2010GB06117

PATIENT
  Sex: Male

DRUGS (3)
  1. CLOZARIL [Suspect]
     Dosage: UNK MG, UNK
     Route: 048
     Dates: start: 20071130
  2. CLOZARIL [Suspect]
     Route: 048
     Dates: start: 20071130, end: 19000101
  3. CLOZARIL [Suspect]
     Indication: SCHIZOPHRENIA
     Dosage: UNK MG, UNK
     Route: 048
     Dates: start: 19970101

REACTIONS (5)
  - CHEST DISCOMFORT [None]
  - LIVER FUNCTION TEST ABNORMAL [None]
  - TUBERCULOSIS [None]
  - MALAISE [None]
  - HEPATITIS C [None]
